FAERS Safety Report 9752014 (Version 1)
Quarter: 2013Q4

REPORT INFORMATION
  Report Type: Spontaneous
  Country: US (occurrence: None)
  Receive Date: 20131211
  Receipt Date: 20131211
  Transmission Date: 20140711
  Serious: Yes (Hospitalization)
  Sender: FDA-Public Use
  Company Number: None

PATIENT
  Age: 75 Year
  Sex: Male
  Weight: 106 kg

DRUGS (5)
  1. WARFARIN 5 MG [Suspect]
     Indication: THROMBOSIS PROPHYLAXIS
     Route: 048
     Dates: start: 20131031, end: 20131106
  2. WARFARIN 5 MG [Suspect]
     Indication: THROMBOSIS PROPHYLAXIS
     Route: 048
     Dates: start: 20131031, end: 20131106
  3. OXYCODONE/APAP [Concomitant]
  4. BENAZEPRIL [Concomitant]
  5. METOPROLOL SUCCINATE [Concomitant]

REACTIONS (2)
  - Duodenal ulcer [None]
  - Upper gastrointestinal haemorrhage [None]
